FAERS Safety Report 9867116 (Version 1)
Quarter: 2014Q1

REPORT INFORMATION
  Report Type: Spontaneous
  Country: US (occurrence: US)
  Receive Date: 20140204
  Receipt Date: 20140204
  Transmission Date: 20141002
  Serious: Yes (Life-Threatening, Hospitalization)
  Sender: FDA-Public Use
  Company Number: US-BAYER-2014-017041

PATIENT
  Age: 24 Year
  Sex: Female
  Weight: 61.22 kg

DRUGS (5)
  1. YASMIN [Suspect]
  2. YAZ [Suspect]
  3. ALLEGRA [Concomitant]
  4. Z-PAK [Concomitant]
  5. CODEINE W/GUAIFENESIN [Concomitant]

REACTIONS (1)
  - Pulmonary embolism [None]
